FAERS Safety Report 5116943-X (Version None)
Quarter: 2006Q3

REPORT INFORMATION
  Report Type: 
  Country: None (occurrence: None)
  Receive Date: 20060925
  Receipt Date: 20060911
  Transmission Date: 20061208
  Serious: Yes (Other)
  Sender: FDA-Public Use
  Company Number: B0438433A

PATIENT
  Age: 49 Year
  Sex: Male

DRUGS (1)
  1. LITHIUM CARBONATE [Suspect]

REACTIONS (3)
  - DRUG TOXICITY [None]
  - HYPOVOLAEMIA [None]
  - NEPHROGENIC DIABETES INSIPIDUS [None]
